FAERS Safety Report 25315528 (Version 1)
Quarter: 2025Q2

REPORT INFORMATION
  Report Type: Spontaneous
  Country: CN (occurrence: CN)
  Receive Date: 20250514
  Receipt Date: 20250514
  Transmission Date: 20250716
  Serious: Yes (Other)
  Sender: BAXTER
  Company Number: None

PATIENT
  Age: 39 Year
  Sex: Female
  Weight: 75 kg

DRUGS (4)
  1. CYCLOPHOSPHAMIDE [Suspect]
     Active Substance: CYCLOPHOSPHAMIDE
     Indication: Breast cancer female
     Dosage: 1.1 G, QD
     Route: 041
     Dates: start: 20250408, end: 20250408
  2. SODIUM CHLORIDE [Suspect]
     Active Substance: SODIUM CHLORIDE
     Indication: Medication dilution
     Dosage: 50 ML, QD, IVGTT D1(CYCLOPHOSPHAMIDE FOR INJECTION + 0.9% SODIUM CHLORIDE INJECTION)
     Route: 041
     Dates: start: 20250408
  3. DEXTROSE [Suspect]
     Active Substance: DEXTROSE MONOHYDRATE
     Indication: Medication dilution
     Dosage: 750 ML, QD, IVGTT D1 (DOXORUBICIN HYDROCHLORIDE LIPOSOME INJECTION + 5% GLUCOSE INJECTION)
     Route: 041
     Dates: start: 20250408
  4. DOXORUBICIN HYDROCHLORIDE [Suspect]
     Active Substance: DOXORUBICIN HYDROCHLORIDE
     Indication: Breast cancer female
     Dosage: 60 MG, QD (SELF-PREPARED)
     Route: 041
     Dates: start: 20250408, end: 20250408

REACTIONS (1)
  - Leukopenia [Unknown]

NARRATIVE: CASE EVENT DATE: 20250428
